FAERS Safety Report 10006861 (Version 1)
Quarter: 2014Q1

REPORT INFORMATION
  Report Type: Spontaneous
  Country: FR (occurrence: None)
  Receive Date: 20140311
  Receipt Date: 20140311
  Transmission Date: 20141002
  Serious: Yes (Hospitalization)
  Sender: FDA-Public Use
  Company Number: 2014CP000033

PATIENT
  Age: 89 Year
  Sex: Female

DRUGS (7)
  1. PERFALGAN [Suspect]
     Route: 042
     Dates: start: 20131216, end: 20131224
  2. TRAMADOL HCL [Suspect]
     Route: 048
     Dates: start: 20131217, end: 20131224
  3. CEFTRIAXONE [Suspect]
     Route: 042
     Dates: start: 20131216, end: 20131223
  4. OFLOXACIN [Suspect]
     Route: 042
     Dates: start: 20131216, end: 20131223
  5. AMOXICILLIN (AMOXICILLIN) [Suspect]
     Indication: LUNG DISORDER
     Route: 042
     Dates: start: 20131224, end: 20140102
  6. ACICLOVIR (ACICLOVIR) [Suspect]
     Indication: HERPES VIRUS INFECTION
     Route: 042
     Dates: start: 20131221, end: 20140103
  7. FUROSEMIDE (FUROSEMIDE) [Suspect]
     Route: 042
     Dates: start: 20131216, end: 20131230

REACTIONS (3)
  - Thrombophlebitis superficial [None]
  - Confusional state [None]
  - Deep vein thrombosis [None]
